FAERS Safety Report 9924632 (Version 1)
Quarter: 2014Q1

REPORT INFORMATION
  Report Type: Spontaneous
  Country: US (occurrence: None)
  Receive Date: 20140224
  Receipt Date: 20140224
  Transmission Date: 20141002
  Serious: Yes (Disabling)
  Sender: FDA-Public Use
  Company Number: None

PATIENT
  Age: 51 Year
  Sex: Female
  Weight: 68.04 kg

DRUGS (2)
  1. PREDNISOLONE [Suspect]
     Indication: ANTIINFLAMMATORY THERAPY
     Dosage: 1 GTT QID QD TOPICAL
     Route: 061
     Dates: start: 20140106, end: 20140203
  2. VIGAMOX [Concomitant]

REACTIONS (2)
  - Scar [None]
  - Impaired healing [None]
